FAERS Safety Report 25774043 (Version 1)
Quarter: 2025Q3

REPORT INFORMATION
  Report Type: Report from Study
  Country: CN (occurrence: CN)
  Receive Date: 20250908
  Receipt Date: 20250908
  Transmission Date: 20251021
  Serious: Yes (Hospitalization)
  Sender: TAKEDA
  Company Number: CN-TAKEDA-2025TUS078229

PATIENT
  Sex: Male

DRUGS (1)
  1. IXAZOMIB [Suspect]
     Active Substance: IXAZOMIB
     Indication: Plasma cell myeloma

REACTIONS (1)
  - Cardiac disorder [Unknown]
